FAERS Safety Report 21101576 (Version 3)
Quarter: 2023Q1

REPORT INFORMATION
  Report Type: Spontaneous
  Country: ES (occurrence: ES)
  Receive Date: 20220719
  Receipt Date: 20230213
  Transmission Date: 20230418
  Serious: Yes (Life-Threatening, Other)
  Sender: FDA-Public Use
  Company Number: ES-ELI_LILLY_AND_COMPANY-ES202207006088

PATIENT
  Age: 77 Year
  Sex: Male

DRUGS (8)
  1. OLANZAPINE [Suspect]
     Active Substance: OLANZAPINE
     Indication: Confusional state
     Dosage: UNK, UNKNOWN
     Route: 065
  2. HALOPERIDOL [Suspect]
     Active Substance: HALOPERIDOL
     Indication: Confusional state
     Dosage: UNK, UNKNOWN
     Route: 065
  3. QUETIAPINE [Suspect]
     Active Substance: QUETIAPINE
     Indication: Confusional state
     Dosage: UNK, UNKNOWN
     Route: 065
  4. DEXMEDETOMIDINE [Suspect]
     Active Substance: DEXMEDETOMIDINE
     Indication: Confusional state
     Dosage: UNK, UNKNOWN
     Route: 065
  5. CLONIDINE [Suspect]
     Active Substance: CLONIDINE
     Indication: Confusional state
     Dosage: UNK, UNKNOWN
     Route: 065
  6. MORPHINE [Concomitant]
     Active Substance: MORPHINE
     Indication: Post laminectomy syndrome
     Dosage: 150 MG, OTHER
  7. MORPHINE [Concomitant]
     Active Substance: MORPHINE
     Dosage: 4.9 MG
  8. MORPHINE [Concomitant]
     Active Substance: MORPHINE
     Dosage: 7997 MG, OTHER

REACTIONS (5)
  - Respiratory failure [Unknown]
  - Hypercapnia [Unknown]
  - Haemodynamic instability [Unknown]
  - Somnolence [Unknown]
  - Drug ineffective [Unknown]
